FAERS Safety Report 5699364-0 (Version None)
Quarter: 2008Q2

REPORT INFORMATION
  Report Type: 
  Country: None (occurrence: None)
  Receive Date: 20080404
  Receipt Date: 20080319
  Transmission Date: 20081010
  Serious: Yes (Hospitalization)
  Sender: FDA-Public Use
  Company Number: PHHY2008NZ03381

PATIENT
  Age: 77 Year
  Sex: Male

DRUGS (2)
  1. VISUDYNE [Suspect]
     Dates: start: 20080118, end: 20080118
  2. LUCENTIS [Suspect]
     Dates: start: 20080118, end: 20080118

REACTIONS (1)
  - MYOCARDIAL INFARCTION [None]
